FAERS Safety Report 6919734-X (Version None)
Quarter: 2010Q3

REPORT INFORMATION
  Report Type: 
  Country: None (occurrence: None)
  Receive Date: 20100810
  Receipt Date: 20100810
  Transmission Date: 20110219
  Serious: Yes (Hospitalization)
  Sender: FDA-Public Use
  Company Number: None

PATIENT
  Age: 82 Year
  Sex: Female
  Weight: 53 kg

DRUGS (13)
  1. WARFARIN SODIUM [Suspect]
     Indication: ATRIAL FIBRILLATION
     Dosage: 5MG DAILY ORAL CHRONIC
     Route: 048
  2. NEBIVOLOL [Concomitant]
  3. ALB/IPRATROPIUM [Concomitant]
  4. ALPRAZOLAM [Concomitant]
  5. CELECOXIB [Concomitant]
  6. DIGOXIN [Concomitant]
  7. DILTIAZEM [Concomitant]
  8. FUROSEMIDE [Concomitant]
  9. M.V.I. [Concomitant]
  10. VIT D [Concomitant]
  11. T4 [Concomitant]
  12. QUININE [Concomitant]
  13. PANTOPRAZOLE [Concomitant]

REACTIONS (6)
  - ANAEMIA [None]
  - DEHYDRATION [None]
  - FEELING ABNORMAL [None]
  - GASTROINTESTINAL HAEMORRHAGE [None]
  - NAUSEA [None]
  - VOMITING [None]
